FAERS Safety Report 11359946 (Version 4)
Quarter: 2016Q2

REPORT INFORMATION
  Report Type: Report from Study
  Country: CA (occurrence: CA)
  Receive Date: 20150810
  Receipt Date: 20160512
  Transmission Date: 20160815
  Serious: Yes (Other)
  Sender: FDA-Public Use
  Company Number: CA-ROCHE-1237762

PATIENT
  Age: 54 Year
  Sex: Female
  Weight: 136 kg

DRUGS (26)
  1. RITUXAN [Suspect]
     Active Substance: RITUXIMAB
     Indication: RHEUMATOID ARTHRITIS
     Dosage: FREQUENCY: DAY 1, DAY 15
     Route: 042
     Dates: start: 20120510, end: 201501
  2. ACETAMINOPHEN. [Concomitant]
     Active Substance: ACETAMINOPHEN
     Indication: PREMEDICATION
     Route: 048
     Dates: start: 20120510
  3. OMEPRAZOLE. [Concomitant]
     Active Substance: OMEPRAZOLE
  4. APO-MEDROXY [Concomitant]
  5. CALCITE [Concomitant]
     Active Substance: CALCIUM CARBONATE
  6. ULTRAM [Concomitant]
     Active Substance: TRAMADOL HYDROCHLORIDE
  7. CRESTOR [Concomitant]
     Active Substance: ROSUVASTATIN CALCIUM
  8. MICARDIS [Concomitant]
     Active Substance: TELMISARTAN
  9. TRAMCET [Concomitant]
     Active Substance: ACETAMINOPHEN\TRAMADOL
  10. NOVO-DIFENAC [Concomitant]
  11. NOVO-CYCLOPRINE [Concomitant]
  12. PREDNISONE. [Concomitant]
     Active Substance: PREDNISONE
  13. METHOTREXATE [Concomitant]
     Active Substance: METHOTREXATE
     Dosage: DISCONTINUED
     Route: 065
  14. VENLAFAXINE [Concomitant]
     Active Substance: VENLAFAXINE HYDROCHLORIDE
  15. AMLODIPINE [Concomitant]
     Active Substance: AMLODIPINE BESYLATE
  16. ROSUVASTATIN. [Concomitant]
     Active Substance: ROSUVASTATIN
  17. CYCLOBENZAPRINE [Concomitant]
     Active Substance: CYCLOBENZAPRINE
  18. PREGABALINE [Concomitant]
     Active Substance: PREGABALIN
  19. METHYLPREDNISOLONE. [Concomitant]
     Active Substance: METHYLPREDNISOLONE
     Indication: PREMEDICATION
     Route: 042
     Dates: start: 20120510
  20. LEUCOVORIN CALCIUM. [Concomitant]
     Active Substance: LEUCOVORIN CALCIUM
     Dosage: DISCONTINUED
     Route: 065
  21. RANITIDINE. [Concomitant]
     Active Substance: RANITIDINE
  22. DIPHENHYDRAMINE HCL [Concomitant]
     Active Substance: DIPHENHYDRAMINE HYDROCHLORIDE
     Indication: PREMEDICATION
     Route: 048
     Dates: start: 20120510
  23. NOVOQUININE [Concomitant]
  24. ANASTROZOLE. [Concomitant]
     Active Substance: ANASTROZOLE
  25. CELEBREX [Concomitant]
     Active Substance: CELECOXIB
  26. CYMBALTA [Concomitant]
     Active Substance: DULOXETINE HYDROCHLORIDE

REACTIONS (3)
  - Breast cancer [Recovering/Resolving]
  - Knee operation [Not Recovered/Not Resolved]
  - Arthralgia [Not Recovered/Not Resolved]

NARRATIVE: CASE EVENT DATE: 201212
